FAERS Safety Report 5089190-8 (Version None)
Quarter: 2006Q3

REPORT INFORMATION
  Report Type: 
  Country: None (occurrence: None)
  Receive Date: 20060822
  Receipt Date: 20060808
  Transmission Date: 20061208
  Serious: Yes (Hospitalization, Congenital Anomaly, Other)
  Sender: FDA-Public Use
  Company Number: JP200511001121

PATIENT
  Age: 1 Day
  Sex: 0
  Weight: 1.2 kg

DRUGS (3)
  1. HUMALOG [Suspect]
     Dosage: TRANSPLACENTAL
     Route: 064
  2. NOVOLIN N [Concomitant]
  3. ACE INHIBITOR NOS [Concomitant]

REACTIONS (7)
  - CAESAREAN SECTION [None]
  - CRYPTORCHISM [None]
  - DRUG EXPOSURE DURING PREGNANCY [None]
  - PATENT DUCTUS ARTERIOSUS [None]
  - POLYDACTYLY [None]
  - PREMATURE BABY [None]
  - SMALL FOR DATES BABY [None]
